FAERS Safety Report 12992106 (Version 1)
Quarter: 2016Q4

REPORT INFORMATION
  Report Type: Spontaneous
  Country: US (occurrence: US)
  Receive Date: 20161201
  Receipt Date: 20161201
  Transmission Date: 20170207
  Serious: No
  Sender: FDA-Public Use
  Company Number: US-SIGMA-TAU US-2016STPI000627

PATIENT
  Age: 7 Year
  Sex: Female

DRUGS (1)
  1. CYSTARAN [Suspect]
     Active Substance: CYSTEAMINE HYDROCHLORIDE
     Indication: CORNEAL DEPOSITS
     Dosage: 1 GTT, EVERY 1 TO 2 HOURS
     Route: 047
     Dates: start: 20141110

REACTIONS (2)
  - Ocular hyperaemia [Unknown]
  - Eye pain [Unknown]

NARRATIVE: CASE EVENT DATE: 201608
